FAERS Safety Report 4384331-X (Version None)
Quarter: 2004Q2

REPORT INFORMATION
  Report Type: 
  Country: None (occurrence: None)
  Receive Date: 20040621
  Receipt Date: 20040614
  Transmission Date: 20050107
  Serious: Yes (Hospitalization)
  Sender: FDA-Public Use
  Company Number: 2004-06-1006

PATIENT
  Age: 48 Year
  Sex: Female

DRUGS (2)
  1. PEG-INTRON (PEGINTERFERON ALFA-2B) INJECTABLE POWDER [Suspect]
     Dosage: 100 MCG SUBCUTANEOUS
     Route: 058
     Dates: start: 20030731, end: 20030922
  2. RIBAVIRIN [Suspect]
     Dosage: 800 MG QD ORAL
     Route: 048
     Dates: start: 20030731, end: 20030922

REACTIONS (1)
  - ANAEMIA MACROCYTIC [None]
